FAERS Safety Report 19151823 (Version 1)
Quarter: 2021Q2

REPORT INFORMATION
  Report Type: Spontaneous
  Country: CA (occurrence: CA)
  Receive Date: 20210419
  Receipt Date: 20210419
  Transmission Date: 20210717
  Serious: Yes (Hospitalization, Other)
  Sender: FDA-Public Use
  Company Number: CA-TEVA-2021-CA-1901573

PATIENT
  Age: 52 Year
  Sex: Female

DRUGS (26)
  1. QUETIAPINE. [Suspect]
     Active Substance: QUETIAPINE
     Indication: PSYCHOTIC DISORDER
     Dosage: 50 MILLIGRAM DAILY;
     Route: 048
  2. BISACODYL. [Concomitant]
     Active Substance: BISACODYL
  3. CHLORAL HYDRATE [Concomitant]
     Active Substance: CHLORAL HYDRATE
  4. PROCYCLIDINE [Suspect]
     Active Substance: PROCYCLIDINE
     Indication: PROPHYLAXIS
     Dosage: 2.5 MILLIGRAM DAILY;
     Route: 048
  5. ATOVAQUONEW/PROGUANIL [Concomitant]
  6. CALCIUM CARBONATE. [Concomitant]
     Active Substance: CALCIUM CARBONATE
  7. DIAZEPAM. [Suspect]
     Active Substance: DIAZEPAM
     Indication: DEPRESSION
     Route: 048
  8. ABACAVIR. [Concomitant]
     Active Substance: ABACAVIR
  9. ACETAMINOPHEN. [Concomitant]
     Active Substance: ACETAMINOPHEN
     Indication: PAIN IN EXTREMITY
     Route: 048
  10. LACTULOSE. [Concomitant]
     Active Substance: LACTULOSE
  11. DIAZEPAM. [Suspect]
     Active Substance: DIAZEPAM
     Dosage: 1500 MILLIGRAM DAILY;
     Route: 048
  12. IMODIUM [Concomitant]
     Active Substance: LOPERAMIDE HYDROCHLORIDE
  13. VITAMINS NOS [Concomitant]
     Active Substance: VITAMINS
  14. RISPERIDONE. [Suspect]
     Active Substance: RISPERIDONE
     Indication: PSYCHOTIC DISORDER
     Dosage: 3 MILLIGRAM DAILY;
     Route: 048
  15. CLONAZEPAM. [Suspect]
     Active Substance: CLONAZEPAM
     Indication: HYPOMANIA
     Dosage: 30 MILLIGRAM DAILY;
     Route: 048
  16. OLANZAPINE. [Suspect]
     Active Substance: OLANZAPINE
     Indication: PSYCHOTIC DISORDER
     Dosage: 5 MILLIGRAM DAILY;
     Route: 048
  17. ACETAMINOPHEN/DIPHENHYDRAMINE/PHENYLPRO PANOLAMINE [Concomitant]
  18. KALETRA [Concomitant]
     Active Substance: LOPINAVIR\RITONAVIR
  19. LITHIUM. [Concomitant]
     Active Substance: LITHIUM
  20. NYSTATIN. [Concomitant]
     Active Substance: NYSTATIN
  21. DIAZEPAM. [Suspect]
     Active Substance: DIAZEPAM
     Dosage: 500 MILLIGRAM DAILY;
     Route: 048
  22. OLANZAPINE. [Suspect]
     Active Substance: OLANZAPINE
     Dosage: 12.5 MILLIGRAM DAILY;
     Route: 048
  23. TRAZODONE [Suspect]
     Active Substance: TRAZODONE HYDROCHLORIDE
     Indication: DEPRESSION
     Dosage: 50 MILLIGRAM DAILY;
     Route: 048
  24. TEGRETOL [Suspect]
     Active Substance: CARBAMAZEPINE
     Indication: HYPOMANIA
     Dosage: 400 MILLIGRAM DAILY;
     Route: 065
  25. 3TC [Concomitant]
     Active Substance: LAMIVUDINE
  26. T?20 [Concomitant]
     Active Substance: ENFUVIRTIDE

REACTIONS (12)
  - Jaundice cholestatic [Unknown]
  - Schizophrenia [Unknown]
  - Blood bilirubin increased [Unknown]
  - Pneumonia [Unknown]
  - Psychotic disorder [Unknown]
  - Nausea [Unknown]
  - Hepatic enzyme increased [Unknown]
  - Hepatotoxicity [Unknown]
  - Vomiting [Unknown]
  - Hypomania [Unknown]
  - Cholelithiasis [Unknown]
  - Condition aggravated [Unknown]
